FAERS Safety Report 17174058 (Version 3)
Quarter: 2020Q1

REPORT INFORMATION
  Report Type: Spontaneous
  Country: US (occurrence: US)
  Receive Date: 20191219
  Receipt Date: 20200304
  Transmission Date: 20200409
  Serious: No
  Sender: FDA-Public Use
  Company Number: US-PFIZER INC-2019545082

PATIENT
  Age: 52 Year
  Sex: Female
  Weight: 90.7 kg

DRUGS (3)
  1. IBRANCE [Suspect]
     Active Substance: PALBOCICLIB
     Dosage: 100 MG, 1X/DAY
     Dates: start: 20200218
  2. FASLODEX [Concomitant]
     Active Substance: FULVESTRANT
     Dosage: UNK
     Dates: start: 20191203
  3. IBRANCE [Suspect]
     Active Substance: PALBOCICLIB
     Indication: BREAST CANCER METASTATIC
     Dosage: 125 MG, 1X/DAY
     Dates: start: 20191205

REACTIONS (3)
  - White blood cell count abnormal [Recovered/Resolved]
  - Pruritus [Recovered/Resolved]
  - Fatigue [Recovered/Resolved]
